FAERS Safety Report 4466072-3 (Version None)
Quarter: 2004Q3

REPORT INFORMATION
  Report Type: 
  Country: None (occurrence: None)
  Receive Date: 20040930
  Receipt Date: 20040930
  Transmission Date: 20050211
  Serious: Yes (Other)
  Sender: FDA-Public Use
  Company Number: None

PATIENT
  Age: 31 Year
  Sex: Female
  Weight: 77.1115 kg

DRUGS (7)
  1. PAXIL [Suspect]
     Indication: ANXIETY
     Dosage: 20MG  THEN ONCE A DAY ORAL
     Route: 048
     Dates: start: 20040128, end: 20040320
  2. PAXIL [Suspect]
     Indication: ANXIETY DISORDER
     Dosage: 20MG  THEN ONCE A DAY ORAL
     Route: 048
     Dates: start: 20040128, end: 20040320
  3. PAXIL [Suspect]
     Indication: DEPRESSION
     Dosage: 20MG  THEN ONCE A DAY ORAL
     Route: 048
     Dates: start: 20040128, end: 20040320
  4. PAXIL [Suspect]
     Indication: POST-TRAUMATIC STRESS DISORDER
     Dosage: 20MG  THEN ONCE A DAY ORAL
     Route: 048
     Dates: start: 20040128, end: 20040320
  5. PAXIL [Suspect]
     Indication: BORDERLINE PERSONALITY DISORDER
     Dosage: 30 MG
  6. PAXIL [Suspect]
     Indication: HISTRIONIC PERSONALITY DISORDER
     Dosage: 30 MG
  7. PAXIL [Suspect]
     Indication: PERSONALITY DISORDER
     Dosage: 30 MG

REACTIONS (6)
  - ABNORMAL BEHAVIOUR [None]
  - DRUG WITHDRAWAL SYNDROME [None]
  - INSOMNIA [None]
  - NOCTIPHOBIA [None]
  - SUICIDAL IDEATION [None]
  - THINKING ABNORMAL [None]
